FAERS Safety Report 5728885-7 (Version None)
Quarter: 2008Q2

REPORT INFORMATION
  Report Type: 
  Country: None (occurrence: None)
  Receive Date: 20080506
  Receipt Date: 20080506
  Transmission Date: 20081010
  Serious: Yes (Other)
  Sender: FDA-Public Use
  Company Number: A0726417A

PATIENT
  Age: 50 Year
  Sex: Female
  Weight: 101 kg

DRUGS (2)
  1. ALLI [Suspect]
     Indication: WEIGHT LOSS DIET
  2. CELEXA [Concomitant]

REACTIONS (4)
  - ANAL HAEMORRHAGE [None]
  - DIARRHOEA [None]
  - HAEMATOCHEZIA [None]
  - MUSCLE SPASMS [None]
